FAERS Safety Report 8987911 (Version 6)
Quarter: 2013Q1

REPORT INFORMATION
  Report Type: Spontaneous
  Country: US (occurrence: US)
  Receive Date: 20121227
  Receipt Date: 20130226
  Transmission Date: 20140127
  Serious: No
  Sender: FDA-Public Use
  Company Number: US-PFIZER INC-2012326548

PATIENT
  Age: 57 Year
  Sex: Female
  Weight: 54.4 kg

DRUGS (6)
  1. ESTRING [Suspect]
     Indication: HORMONE REPLACEMENT THERAPY
     Dosage: 2 MG, EVERY 3 MONTHS
     Route: 067
     Dates: start: 20120909, end: 201212
  2. ESTRING [Suspect]
     Indication: VULVOVAGINAL PAIN
     Dosage: UNK
     Route: 067
     Dates: start: 20121221
  3. ESTRING [Suspect]
     Indication: PELVIC FLOOR MUSCLE WEAKNESS
  4. PREPARATIONS INCREASING URIC ACID EXCRETION [Concomitant]
     Indication: SKIN DISORDER
     Dosage: UNK
  5. LORAZEPAM [Concomitant]
     Dosage: 1 MG, DAILY
  6. NORTRIPTYLINE [Concomitant]
     Dosage: 30 MG, (3 X 10 MG) DAILY

REACTIONS (4)
  - Product quality issue [Unknown]
  - Vulvovaginal pain [Recovered/Resolved]
  - Vulvovaginal discomfort [Unknown]
  - Malaise [Not Recovered/Not Resolved]
